FAERS Safety Report 6761467-7 (Version None)
Quarter: 2010Q2

REPORT INFORMATION
  Report Type: 
  Country: None (occurrence: None)
  Receive Date: 20100607
  Receipt Date: 20100527
  Transmission Date: 20101027
  Serious: Yes (Congenital Anomaly)
  Sender: FDA-Public Use
  Company Number: LEO-2010-00463

PATIENT
  Sex: Male
  Weight: 3.575 kg

DRUGS (2)
  1. INNOHEP [Suspect]
     Indication: DRUG EXPOSURE DURING PREGNANCY
     Dosage: TRANSPLACENTAL
     Route: 064
     Dates: start: 20061221, end: 20070724
  2. HEMOHERN (FERROUS FUMARATE, HEMOGLOBIN) [Concomitant]

REACTIONS (2)
  - HYPOSPADIAS [None]
  - MATERNAL DRUGS AFFECTING FOETUS [None]
